FAERS Safety Report 7746249-1 (Version None)
Quarter: 2011Q3

REPORT INFORMATION
  Report Type: 
  Country: None (occurrence: None)
  Receive Date: 20110913
  Receipt Date: 20110905
  Transmission Date: 20111222
  Serious: Yes (Death, Hospitalization, Other)
  Sender: FDA-Public Use
  Company Number: GB-MPIJNJ-2011-02880

PATIENT

DRUGS (6)
  1. TERIPARATIDE [Concomitant]
     Indication: PROSTATE CANCER METASTATIC
     Dosage: 20 MG, UNK
     Route: 058
     Dates: start: 20101213
  2. ENOXAPARIN SODIUM [Concomitant]
     Indication: DEEP VEIN THROMBOSIS
     Dosage: 120 MG, UNK
     Dates: start: 20101206
  3. MORPHINE SULFATE [Concomitant]
     Indication: PAIN
     Dosage: 90 MG, UNK
     Route: 048
     Dates: start: 20101213
  4. VELCADE [Suspect]
     Dosage: 3 MG, UNK
     Route: 042
  5. EVEROLIMUS [Concomitant]
     Indication: PROSTATE CANCER METASTATIC
     Dosage: 10 MG, UNK
     Route: 048
     Dates: start: 20101122
  6. VELCADE [Suspect]
     Indication: PROSTATE CANCER METASTATIC
     Dosage: 3.1 MG, UNK
     Route: 042
     Dates: start: 20101122, end: 20110110

REACTIONS (6)
  - PROSTATE CANCER [None]
  - SEPSIS [None]
  - OFF LABEL USE [None]
  - PULMONARY EMBOLISM [None]
  - CARDIAC ARREST [None]
  - OVERDOSE [None]
